FAERS Safety Report 6600440-6 (Version None)
Quarter: 2010Q1

REPORT INFORMATION
  Report Type: 
  Country: None (occurrence: None)
  Receive Date: 20100223
  Receipt Date: 20100223
  Transmission Date: 20100710
  Serious: Yes (Disabling)
  Sender: FDA-Public Use
  Company Number: None

PATIENT
  Sex: Female
  Weight: 78.2 kg

DRUGS (1)
  1. 5-FU 225 MG/M2 DAILY 42 DAYS IV [Suspect]
     Indication: RECTAL CANCER
     Dosage: 5-FU 225 MG/M2 DAILY FOR 42 DAYS, WEEKLY
     Dates: end: 20071001

REACTIONS (1)
  - PERIPHERAL SENSORIMOTOR NEUROPATHY [None]
